FAERS Safety Report 12387588 (Version 1)
Quarter: 2016Q2

REPORT INFORMATION
  Report Type: Spontaneous
  Country: US (occurrence: US)
  Receive Date: 20160520
  Receipt Date: 20160520
  Transmission Date: 20160815
  Serious: No
  Sender: FDA-Public Use
  Company Number: US-AMGEN-USASP2016063772

PATIENT
  Age: 61 Year
  Sex: Male

DRUGS (1)
  1. ENBREL [Suspect]
     Active Substance: ETANERCEPT
     Indication: PSORIATIC ARTHROPATHY
     Dosage: 50 MG, QWK
     Route: 058
     Dates: start: 201603, end: 201604

REACTIONS (5)
  - Neuropathy peripheral [Recovered/Resolved]
  - Injection site erythema [Unknown]
  - Peripheral swelling [Unknown]
  - Injection site induration [Unknown]
  - Joint swelling [Unknown]

NARRATIVE: CASE EVENT DATE: 2016
